FAERS Safety Report 13234262 (Version 1)
Quarter: 2017Q1

REPORT INFORMATION
  Report Type: Spontaneous
  Country: US (occurrence: US)
  Receive Date: 20170215
  Receipt Date: 20170215
  Transmission Date: 20170428
  Serious: Yes (Hospitalization)
  Sender: FDA-Public Use
  Company Number: None

PATIENT
  Sex: Male

DRUGS (1)
  1. LISINOPRIL. [Suspect]
     Active Substance: LISINOPRIL

REACTIONS (6)
  - Dizziness [None]
  - Heart rate increased [None]
  - Fatigue [None]
  - Hypotension [None]
  - Therapy cessation [None]
  - Hyperkalaemia [None]

NARRATIVE: CASE EVENT DATE: 20150605
